FAERS Safety Report 5669379-7 (Version None)
Quarter: 2008Q1

REPORT INFORMATION
  Report Type: 
  Country: None (occurrence: None)
  Receive Date: 20080317
  Receipt Date: 20080303
  Transmission Date: 20080703
  Serious: Yes (Hospitalization, Other)
  Sender: FDA-Public Use
  Company Number: PHBS2007JP15356

PATIENT
  Age: 50 Year
  Sex: Male

DRUGS (4)
  1. SANDOSTATIN [Suspect]
     Indication: PANCREATIC CYST
     Dosage: 300UG/DAILY
     Route: 058
     Dates: start: 20070904, end: 20070910
  2. FAMOTIDINE [Concomitant]
     Dosage: 40MG
     Route: 048
     Dates: start: 20070820
  3. POLITOSE [Concomitant]
     Dosage: 3 DF
     Route: 048
     Dates: start: 20070820
  4. MAGLAX [Concomitant]
     Dosage: 750MG
     Route: 048
     Dates: start: 20070807

REACTIONS (7)
  - ALANINE AMINOTRANSFERASE INCREASED [None]
  - ASPARTATE AMINOTRANSFERASE INCREASED [None]
  - BLOOD ALKALINE PHOSPHATASE INCREASED [None]
  - BLOOD BILIRUBIN INCREASED [None]
  - CYST REMOVAL [None]
  - GAMMA-GLUTAMYLTRANSFERASE INCREASED [None]
  - LIVER DISORDER [None]
